FAERS Safety Report 13724497 (Version 1)
Quarter: 2017Q3

REPORT INFORMATION
  Report Type: Spontaneous
  Country: US (occurrence: US)
  Receive Date: 20170706
  Receipt Date: 20170706
  Transmission Date: 20171127
  Serious: Yes (Other)
  Sender: FDA-Public Use
  Company Number: US-TESARO, INC-US-2017TSO01340

PATIENT

DRUGS (1)
  1. ZEJULA [Suspect]
     Active Substance: NIRAPARIB
     Indication: FALLOPIAN TUBE CANCER
     Dosage: 300 MG, QD
     Route: 048
     Dates: start: 2017, end: 20170627

REACTIONS (3)
  - Abdominal distension [Unknown]
  - Ascites [Unknown]
  - Disease progression [Unknown]

NARRATIVE: CASE EVENT DATE: 2017
